FAERS Safety Report 5703937-6 (Version None)
Quarter: 2008Q2

REPORT INFORMATION
  Report Type: 
  Country: None (occurrence: None)
  Receive Date: 20080409
  Receipt Date: 20080326
  Transmission Date: 20081010
  Serious: Yes (Other)
  Sender: FDA-Public Use
  Company Number: ENT 2008-0051

PATIENT
  Age: 69 Year
  Sex: Male

DRUGS (3)
  1. COMTAN [Suspect]
     Indication: PARKINSON'S DISEASE
     Dosage: 300 MG ORAL
     Route: 048
     Dates: start: 20080131, end: 20080206
  2. EC DOPARL [Concomitant]
  3. ARTANE [Concomitant]

REACTIONS (5)
  - AGGRESSION [None]
  - DELIRIUM [None]
  - EARLY MORNING AWAKENING [None]
  - HALLUCINATION [None]
  - MEMORY IMPAIRMENT [None]
